FAERS Safety Report 13141274 (Version 2)
Quarter: 2017Q1

REPORT INFORMATION
  Report Type: Spontaneous
  Country: US (occurrence: US)
  Receive Date: 20170123
  Receipt Date: 20170127
  Transmission Date: 20170428
  Serious: No
  Sender: FDA-Public Use
  Company Number: US-UNITED THERAPEUTICS-UNT-2016-017700

PATIENT
  Age: 40 Year
  Sex: Female
  Weight: 49.89 kg

DRUGS (6)
  1. REMODULIN [Suspect]
     Active Substance: TREPROSTINIL
     Dosage: 0.026 UNK, UNK
     Route: 058
  2. LETAIRIS [Suspect]
     Active Substance: AMBRISENTAN
     Indication: PRODUCT USED FOR UNKNOWN INDICATION
     Dosage: 10 MG, QD
     Route: 065
  3. REMODULIN [Suspect]
     Active Substance: TREPROSTINIL
     Indication: PULMONARY ARTERIAL HYPERTENSION
     Dosage: 0.0473 ?G/KG, CONTINUING
     Route: 058
     Dates: start: 20130718
  4. REMODULIN [Suspect]
     Active Substance: TREPROSTINIL
     Dosage: 0.028 UNK, UNK
     Route: 058
  5. ADCIRCA [Concomitant]
     Active Substance: TADALAFIL
     Indication: PRODUCT USED FOR UNKNOWN INDICATION
  6. COUMADIN [Concomitant]
     Active Substance: WARFARIN SODIUM
     Indication: PRODUCT USED FOR UNKNOWN INDICATION

REACTIONS (8)
  - Infusion site pain [Unknown]
  - Blood pressure decreased [Unknown]
  - Hyperhidrosis [Recovering/Resolving]
  - Heart rate decreased [Unknown]
  - Nausea [Not Recovered/Not Resolved]
  - Dizziness postural [Recovering/Resolving]
  - Malaise [Unknown]
  - Feeling abnormal [Unknown]

NARRATIVE: CASE EVENT DATE: 201611
